FAERS Safety Report 11668560 (Version 1)
Quarter: 2015Q4

REPORT INFORMATION
  Report Type: Spontaneous
  Country: AU (occurrence: AU)
  Receive Date: 20151027
  Receipt Date: 20151027
  Transmission Date: 20160304
  Serious: Yes (Other)
  Sender: FDA-Public Use
  Company Number: AU-GLAXOSMITHKLINE-AU2015GSK151032

PATIENT
  Sex: Male

DRUGS (1)
  1. BACTROBAN [Suspect]
     Active Substance: MUPIROCIN\MUPIROCIN CALCIUM
     Indication: PRODUCT USED FOR UNKNOWN INDICATION
     Dosage: UNK

REACTIONS (5)
  - Nasal oedema [Unknown]
  - Sleep apnoea syndrome [Unknown]
  - Product preparation error [Unknown]
  - Myocardial infarction [Unknown]
  - Nasal discomfort [Unknown]

NARRATIVE: CASE EVENT DATE: 201510
